FAERS Safety Report 6908501-9 (Version None)
Quarter: 2010Q3

REPORT INFORMATION
  Report Type: 
  Country: None (occurrence: None)
  Receive Date: 20100805
  Receipt Date: 20100726
  Transmission Date: 20110219
  Serious: Yes (Other)
  Sender: FDA-Public Use
  Company Number: KR-PFIZER INC-2010092904

PATIENT

DRUGS (1)
  1. ALDACTONE [Suspect]
     Dosage: 150 MG, UNK
     Route: 048
     Dates: start: 20100601

REACTIONS (2)
  - CIRCUMSTANCE OR INFORMATION CAPABLE OF LEADING TO MEDICATION ERROR [None]
  - HEPATIC ENCEPHALOPATHY [None]
